FAERS Safety Report 18375550 (Version 5)
Quarter: 2022Q1

REPORT INFORMATION
  Report Type: Spontaneous
  Country: US (occurrence: US)
  Receive Date: 20201013
  Receipt Date: 20220228
  Transmission Date: 20220424
  Serious: Yes (Other)
  Sender: FDA-Public Use
  Company Number: US-TEVA-2020-US-1836893

PATIENT
  Age: 67 Year
  Sex: Female

DRUGS (3)
  1. PROVIGIL [Suspect]
     Active Substance: MODAFINIL
     Route: 065
  2. PROPRANOLOL [Concomitant]
     Active Substance: PROPRANOLOL HYDROCHLORIDE
  3. cardia XT [Concomitant]
     Route: 065

REACTIONS (8)
  - Cerebrovascular accident [Unknown]
  - Drug dependence [Unknown]
  - Hypersensitivity [Unknown]
  - Dizziness [Unknown]
  - Dyspnoea [Unknown]
  - Cardiac disorder [Unknown]
  - Presyncope [Unknown]
  - Product prescribing error [Unknown]
